FAERS Safety Report 7549126-4 (Version None)
Quarter: 2011Q2

REPORT INFORMATION
  Report Type: 
  Country: None (occurrence: None)
  Receive Date: 20110615
  Receipt Date: 20110606
  Transmission Date: 20111010
  Serious: Yes (Hospitalization)
  Sender: FDA-Public Use
  Company Number: JP-ASTRAZENECA-2011SE31045

PATIENT
  Age: 63 Year
  Sex: Male
  Weight: 50 kg

DRUGS (27)
  1. INHIROCK [Concomitant]
     Route: 048
     Dates: start: 20110520
  2. MAGNESIUM SULFATE [Concomitant]
     Route: 048
     Dates: start: 20110520
  3. ARTANE [Concomitant]
     Indication: SCHIZOPHRENIA
     Route: 048
     Dates: end: 20110518
  4. LONASEN [Concomitant]
     Indication: SCHIZOPHRENIA
     Route: 048
     Dates: end: 20110518
  5. LONASEN [Concomitant]
     Route: 048
     Dates: start: 20110520
  6. RADEN [Concomitant]
     Route: 048
     Dates: start: 20110520
  7. MAGNESIUM SULFATE [Concomitant]
     Indication: CONSTIPATION
     Route: 048
     Dates: end: 20110518
  8. ROHYPNOL [Concomitant]
     Route: 048
     Dates: start: 20110520
  9. HIRNAMIN [Concomitant]
     Indication: SCHIZOPHRENIA
     Route: 048
     Dates: end: 20110518
  10. VEGETAMIN-A [Concomitant]
     Route: 048
     Dates: start: 20110520
  11. UBRETID [Concomitant]
     Indication: BENIGN PROSTATIC HYPERPLASIA
     Route: 048
     Dates: end: 20110518
  12. ARTANE [Concomitant]
     Route: 048
     Dates: start: 20110520
  13. DEPAKENE [Concomitant]
     Route: 048
     Dates: start: 20110520
  14. CRESTOR [Suspect]
     Indication: HYPERLIPIDAEMIA
     Route: 048
     Dates: end: 20110518
  15. INHIROCK [Concomitant]
     Indication: HYPERTENSION
     Route: 048
     Dates: end: 20110518
  16. ATENOLOL [Concomitant]
     Indication: HYPERTENSION
     Route: 048
     Dates: end: 20110518
  17. ABILIFY [Concomitant]
     Route: 048
     Dates: start: 20110520
  18. PURSENNID [Concomitant]
     Indication: SCHIZOPHRENIA
     Route: 048
     Dates: end: 20110518
  19. HIRNAMIN [Concomitant]
     Route: 048
     Dates: start: 20110520
  20. DEPAKENE [Concomitant]
     Indication: SCHIZOPHRENIA
     Route: 048
     Dates: end: 20110518
  21. ROHYPNOL [Concomitant]
     Indication: SCHIZOPHRENIA
     Route: 048
     Dates: end: 20110518
  22. PURSENNID [Concomitant]
     Route: 048
     Dates: start: 20110520
  23. UBRETID [Concomitant]
     Route: 048
     Dates: start: 20110520
  24. ATENOLOL [Concomitant]
     Route: 048
     Dates: start: 20110520
  25. RADEN [Concomitant]
     Indication: GASTRIC ULCER
     Route: 048
     Dates: end: 20110518
  26. ABILIFY [Concomitant]
     Indication: SCHIZOPHRENIA
     Route: 048
     Dates: end: 20110518
  27. VEGETAMIN-A [Concomitant]
     Indication: SCHIZOPHRENIA
     Route: 048
     Dates: end: 20110518

REACTIONS (3)
  - DIZZINESS [None]
  - FALL [None]
  - RHABDOMYOLYSIS [None]
